FAERS Safety Report 7767051-0 (Version None)
Quarter: 2011Q3

REPORT INFORMATION
  Report Type: 
  Country: None (occurrence: None)
  Receive Date: 20110922
  Receipt Date: 20101102
  Transmission Date: 20111222
  Serious: No
  Sender: FDA-Public Use
  Company Number: US-ASTRAZENECA-2010SE52422

PATIENT
  Age: 38 Year
  Sex: Female

DRUGS (2)
  1. SEROQUEL XR [Suspect]
     Indication: BIPOLAR DISORDER
     Route: 048
     Dates: end: 20080101
  2. SEROQUEL XR [Suspect]
     Route: 048
     Dates: start: 20080101

REACTIONS (2)
  - SOMNOLENCE [None]
  - DRUG DOSE OMISSION [None]
